FAERS Safety Report 8915305 (Version 1)
Quarter: 2012Q4

REPORT INFORMATION
  Report Type: 
  Country: US (occurrence: US)
  Receive Date: 20121119
  Receipt Date: 20121119
  Transmission Date: 20130627
  Serious: No
  Sender: FDA-Public Use
  Company Number: US-PFIZER INC-2012288427

PATIENT
  Age: 62 Year
  Sex: Female
  Weight: 101 kg

DRUGS (4)
  1. LYRICA [Suspect]
     Indication: NEUROPATHY PERIPHERAL
     Dosage: 75 mg, 2x/day
  2. BYSTOLIC [Concomitant]
     Indication: BLOOD PRESSURE HIGH
     Dosage: 5 mg,daily
  3. LISINOPRIL [Concomitant]
     Indication: BLOOD PRESSURE HIGH
     Dosage: 20 mg,daily
  4. SIMVASTATIN [Concomitant]
     Indication: HIGH CHOLESTEROL
     Dosage: 20 mg,daily

REACTIONS (1)
  - Alopecia [Not Recovered/Not Resolved]
